FAERS Safety Report 17971198 (Version 1)
Quarter: 2020Q3

REPORT INFORMATION
  Report Type: Spontaneous
  Country: FR (occurrence: FR)
  Receive Date: 20200701
  Receipt Date: 20200701
  Transmission Date: 20201103
  Serious: Yes (Hospitalization)
  Sender: FDA-Public Use
  Company Number: FR-ASTRAZENECA-2020SE80634

PATIENT
  Age: 54 Year
  Sex: Male
  Weight: 75 kg

DRUGS (15)
  1. KARDEGIC [Suspect]
     Active Substance: ASPIRIN DL-LYSINE
     Dosage: POUDRE POUR SOLUTION BUVABLE EN SACHET?DOSE
     Route: 065
  2. OMEPRAZOLE. [Suspect]
     Active Substance: OMEPRAZOLE
     Dosage: UNKNOWN
     Route: 048
  3. BRILIQUE [Suspect]
     Active Substance: TICAGRELOR
     Dosage: UNKNOWN
     Route: 048
  4. COSIMPREL [Suspect]
     Active Substance: BISOPROLOL FUMARATE\PERINDOPRIL ARGININE
     Dosage: COMPRIM?? PELLICUL?? S??CABLE
     Route: 065
  5. CORTANCYL [Suspect]
     Active Substance: PREDNISONE
     Indication: BASEDOW^S DISEASE
     Route: 048
     Dates: start: 2010, end: 202003
  6. ACUPAN [Suspect]
     Active Substance: NEFOPAM HYDROCHLORIDE
     Dosage: UNKNOWN
     Route: 065
  7. TAHOR [Suspect]
     Active Substance: ATORVASTATIN CALCIUM
     Dosage: COMPRIM?? PELLICUL??
     Route: 065
  8. TOPALGIC L.P. [Suspect]
     Active Substance: TRAMADOL HYDROCHLORIDE
     Dosage: COMPRIM?? ?? LIB??RATION PROLONG??E
     Route: 065
  9. METFORMINE [Suspect]
     Active Substance: METFORMIN HYDROCHLORIDE
     Dosage: UNKNOWN
     Route: 065
  10. DOLIPRANE [Suspect]
     Active Substance: ACETAMINOPHEN
     Dosage: COMPRIM??
     Route: 065
  11. GAVISCON [Suspect]
     Active Substance: ALUMINUM HYDROXIDE\MAGNESIUM CARBONATE
     Dosage: UNKNOWN
     Route: 065
  12. AMLOR [Suspect]
     Active Substance: AMLODIPINE BESYLATE
     Dosage: G??LULE
     Route: 065
  13. PAROEX [Suspect]
     Active Substance: CHLORHEXIDINE GLUCONATE
     Dosage: 0,12 POUR CENT, SOLUTION POUR BAIN DE BOUCHE
     Route: 065
  14. VOLTARENE (DICLOFENAC SODIUM) [Suspect]
     Active Substance: DICLOFENAC SODIUM
     Dosage: COMPRIM?? ENROB?? ?? LIB??RATION PROLONG??E
     Route: 065
  15. LEVOTHYROX [Suspect]
     Active Substance: LEVOTHYROXINE
     Dosage: COMPRIM?? S??CABLE
     Route: 065

REACTIONS (1)
  - Steroid diabetes [Recovered/Resolved with Sequelae]

NARRATIVE: CASE EVENT DATE: 2020
